FAERS Safety Report 8922011 (Version 1)
Quarter: 2012Q4

REPORT INFORMATION
  Report Type: Spontaneous
  Country: US (occurrence: None)
  Receive Date: 20121120
  Receipt Date: 20121120
  Transmission Date: 20130627
  Serious: Yes (Death)
  Sender: FDA-Public Use
  Company Number: None

PATIENT
  Age: 95 Year
  Sex: Male
  Weight: 63.5 kg

DRUGS (4)
  1. RISPERIDONE [Suspect]
     Indication: DEMENTIA
     Dosage: 0.25mg  bid  po
     Route: 048
     Dates: start: 20120704, end: 20121011
  2. RISPERIDONE [Suspect]
     Indication: BEHAVIOR ABNORMAL
     Dosage: 0.25mg  bid  po
     Route: 048
     Dates: start: 20120704, end: 20121011
  3. RISPERIDONE [Suspect]
     Indication: DEMENTIA
     Dosage: 0.75mg hs po
     Route: 048
  4. RISPERIDONE [Suspect]
     Indication: BEHAVIOR ABNORMAL
     Dosage: 0.75mg hs po
     Route: 048

REACTIONS (3)
  - Aggression [None]
  - Activities of daily living impaired [None]
  - Quality of life decreased [None]
